FAERS Safety Report 8251653-1 (Version None)
Quarter: 2012Q2

REPORT INFORMATION
  Report Type: 
  Country: None (occurrence: None)
  Receive Date: 20120402
  Receipt Date: 20120130
  Transmission Date: 20120825
  Serious: No
  Sender: FDA-Public Use
  Company Number: US-ABBOTT-12P-163-0900131-00

PATIENT
  Sex: Male
  Weight: 95.34 kg

DRUGS (6)
  1. ANDROGEL [Suspect]
     Indication: HORMONE REPLACEMENT THERAPY
     Dates: start: 20030101, end: 20111201
  2. FLECAINIDE ACETATE [Concomitant]
     Indication: ATRIAL FIBRILLATION
  3. LEVOTHYROXINE SODIUM [Concomitant]
     Indication: HORMONE REPLACEMENT THERAPY
  4. ANDROGEL [Suspect]
     Indication: HORMONE REPLACEMENT THERAPY
     Dates: start: 20111201
  5. PREDNISONE TAB [Concomitant]
     Indication: HORMONE REPLACEMENT THERAPY
  6. DESMOPRESSIN ACETATE [Concomitant]
     Indication: HORMONE REPLACEMENT THERAPY

REACTIONS (3)
  - PRURITUS [None]
  - PARAESTHESIA [None]
  - URTICARIA [None]
